FAERS Safety Report 7689525-3 (Version None)
Quarter: 2011Q3

REPORT INFORMATION
  Report Type: 
  Country: None (occurrence: None)
  Receive Date: 20110817
  Receipt Date: 20110727
  Transmission Date: 20111222
  Serious: No
  Sender: FDA-Public Use
  Company Number: US-TYCO HEALTHCARE/MALLINCKRODT-T201101389

PATIENT
  Sex: Female

DRUGS (24)
  1. FENTANYL-100 [Suspect]
     Indication: PAIN
     Dosage: UNK
     Route: 062
     Dates: start: 20110101
  2. SYNTHROID [Concomitant]
     Dosage: UNK
     Route: 048
  3. SULINDAC [Concomitant]
     Dosage: UNK
  4. OXYBUTYNIN [Concomitant]
     Dosage: UNK
  5. THEOPHYLLINE [Concomitant]
     Dosage: 600 MG, QD
  6. AVAPRO [Concomitant]
     Dosage: UNK
  7. ASPIRIN [Concomitant]
     Dosage: 81 MG, UNK
  8. SLO-MAG [Concomitant]
     Dosage: UNK
  9. MIRALAX [Concomitant]
     Dosage: 17 MG, UNK
  10. FLUOXETINE [Concomitant]
     Indication: PAIN
     Dosage: 5 MG, 1/2 TAB QD
     Route: 048
  11. EVISTA                             /01303201/ [Concomitant]
     Indication: OSTEOPOROSIS
     Dosage: UNK
     Route: 048
  12. PRAVACHOL [Concomitant]
     Dosage: UNK
  13. LYRICA [Concomitant]
     Dosage: UNK
  14. MILK OF MAGNESIA TAB [Concomitant]
     Dosage: UNK, PRN
  15. VITAMIN B-12 [Concomitant]
     Dosage: 1000 MCG, UNK
  16. FISH OIL [Concomitant]
     Dosage: 1200 MG, UNK
  17. ULTRA TUMS [Concomitant]
     Dosage: UNK
  18. OXYGEN [Concomitant]
     Dosage: AT NIGHT, PRN AND DAYTIME
  19. ACIPHEX [Concomitant]
     Dosage: UNK
  20. ADVAIR DISKUS 100/50 [Concomitant]
     Dosage: UNK
  21. LORTAB [Concomitant]
     Indication: PAIN
     Dosage: 7.5 MG PRN UP TO THREE TABS/DAY
     Route: 048
  22. MULTI-VITAMINS [Concomitant]
     Dosage: UNK
  23. COQ10 [Concomitant]
     Dosage: 100 MG, UNK
  24. GLYCERIN                           /00200601/ [Concomitant]
     Dosage: UNK, PRN
     Route: 054

REACTIONS (4)
  - APPLICATION SITE RASH [None]
  - DRUG INEFFECTIVE [None]
  - APPLICATION SITE PAIN [None]
  - INSOMNIA [None]
